FAERS Safety Report 11830900 (Version 1)
Quarter: 2015Q4

REPORT INFORMATION
  Report Type: Spontaneous
  Country: US (occurrence: None)
  Receive Date: 20151211
  Receipt Date: 20151211
  Transmission Date: 20160305
  Serious: No
  Sender: FDA-Public Use
  Company Number: None

PATIENT
  Age: 70 Year
  Sex: Female

DRUGS (13)
  1. DIFLUNISAL. [Concomitant]
     Active Substance: DIFLUNISAL
  2. LOVASTATIN. [Concomitant]
     Active Substance: LOVASTATIN
  3. OFLOXACIN. [Concomitant]
     Active Substance: OFLOXACIN
  4. POT CL MICRO [Concomitant]
  5. XELJANZ [Suspect]
     Active Substance: TOFACITINIB CITRATE
     Indication: RHEUMATOID ARTHRITIS
     Route: 048
     Dates: start: 20150327
  6. RECLAST [Concomitant]
     Active Substance: ZOLEDRONIC ACID
  7. BENAZEPRIL [Concomitant]
     Active Substance: BENAZEPRIL HYDROCHLORIDE
  8. CLOBETASOL CREAM [Concomitant]
     Active Substance: CLOBETASOL
  9. LORATADINE. [Concomitant]
     Active Substance: LORATADINE
  10. STOOL SOFTNR CAP [Concomitant]
  11. METOPROLOL [Concomitant]
     Active Substance: METOPROLOL
  12. PREDNISONE. [Concomitant]
     Active Substance: PREDNISONE
  13. HYDROCHLOROT [Concomitant]
     Active Substance: HYDROCHLOROTHIAZIDE

REACTIONS (2)
  - Drug ineffective [None]
  - Ear infection [None]

NARRATIVE: CASE EVENT DATE: 201509
